FAERS Safety Report 23693298 (Version 1)
Quarter: 2024Q2

REPORT INFORMATION
  Report Type: Spontaneous
  Country: US (occurrence: None)
  Receive Date: 20240401
  Receipt Date: 20240401
  Transmission Date: 20240716
  Serious: No
  Sender: FDA-Public Use
  Company Number: None

PATIENT
  Sex: Female

DRUGS (2)
  1. ONDANSETRON [Suspect]
     Active Substance: ONDANSETRON
     Indication: Chronic myeloid leukaemia
     Dosage: FREQUENCY : AS NEEDED;?
     Route: 048
     Dates: start: 20240321
  2. ONDANSETRON [Suspect]
     Active Substance: ONDANSETRON
     Indication: Philadelphia chromosome positive

REACTIONS (4)
  - Nausea [None]
  - Vomiting [None]
  - Gastric perforation [None]
  - Gastric haemorrhage [None]
